FAERS Safety Report 5275215-3 (Version None)
Quarter: 2007Q1

REPORT INFORMATION
  Report Type: 
  Country: None (occurrence: None)
  Receive Date: 20070326
  Receipt Date: 20070320
  Transmission Date: 20070707
  Serious: Yes (Death, Hospitalization)
  Sender: FDA-Public Use
  Company Number: US-SHR-US-2006-035704

PATIENT
  Age: 58 Year
  Sex: Male

DRUGS (20)
  1. CAMPATH [Suspect]
     Dosage: 30 MG/DAY, D1-5 EVERY 28 DAYS
     Route: 058
     Dates: start: 20060605, end: 20061027
  2. FLUDARA [Suspect]
     Dosage: 60 MG/DAY, D1-5 EVERY 28 DAYS
     Route: 042
     Dates: start: 20060605, end: 20060101
  3. FLUDARA [Suspect]
     Dosage: 30 MG/DAY, D1-5 EVERY 28 DAY
     Route: 042
     Dates: start: 20061023, end: 20061027
  4. NEULASTA [Concomitant]
  5. LEVAQUIN [Concomitant]
     Dosage: 500 MG, 1X/DAY
     Dates: start: 20061102
  6. TYLENOL [Concomitant]
     Dosage: 650 MG, ROUND THE CLOCK
     Route: 048
     Dates: start: 20061101
  7. BACTRIM DS [Concomitant]
     Dosage: 2 TABS MWF
     Dates: end: 20061101
  8. FAMVIR                                  /UNK/ [Concomitant]
     Dosage: 250 MG, 2X/DAY
  9. FLAGYL [Concomitant]
     Dates: start: 20061109
  10. GLYBURIDE [Concomitant]
     Dosage: 5 MG, 2X/DAY
     Route: 048
     Dates: end: 20061101
  11. METFORMIN HCL [Concomitant]
     Dosage: 500 MG, 2X/DAY
     Route: 048
     Dates: end: 20061101
  12. NIFEDIPINE [Concomitant]
     Dosage: 50 MG, 1X/DAY
     Route: 048
  13. LISINOPRIL [Concomitant]
     Dosage: 10 MG, 1X/DAY
     Route: 048
  14. LOVASTATIN [Concomitant]
     Dosage: 20 MG, 1X/DAY
     Route: 048
  15. EPOGEN [Concomitant]
     Dates: start: 20061101
  16. NEUPOGEN [Concomitant]
     Dates: start: 20061101
  17. ZOSYN [Concomitant]
     Dates: start: 20061101, end: 20061101
  18. DIFLUCAN [Concomitant]
     Dates: start: 20061101, end: 20061101
  19. VANCOMYCIN [Concomitant]
     Dosage: UNK, 1 DOSE
     Dates: start: 20061101, end: 20061101
  20. INSULIN [Concomitant]
     Dates: start: 20061101

REACTIONS (24)
  - BACTERAEMIA [None]
  - CATHETER SITE HAEMORRHAGE [None]
  - CEREBRAL ATROPHY [None]
  - CHOLELITHIASIS [None]
  - COAGULOPATHY [None]
  - DIALYSIS [None]
  - DIARRHOEA [None]
  - ENTEROCOCCAL INFECTION [None]
  - HAEMORRHAGE [None]
  - HEPATIC ENCEPHALOPATHY [None]
  - HEPATIC FAILURE [None]
  - HYPOTENSION [None]
  - HYPOXIA [None]
  - INTESTINAL ISCHAEMIA [None]
  - MULTI-ORGAN FAILURE [None]
  - PANCYTOPENIA [None]
  - PYREXIA [None]
  - RENAL FAILURE ACUTE [None]
  - RENAL TUBULAR NECROSIS [None]
  - RESPIRATORY FAILURE [None]
  - SEPSIS [None]
  - TREMOR [None]
  - TUMOUR LYSIS SYNDROME [None]
  - VIRAL INFECTION [None]
